FAERS Safety Report 23116705 (Version 1)
Quarter: 2023Q4

REPORT INFORMATION
  Report Type: Spontaneous
  Country: US (occurrence: US)
  Receive Date: 20231027
  Receipt Date: 20231027
  Transmission Date: 20240109
  Serious: No
  Sender: FDA-Public Use
  Company Number: US-PERRIGO-23US009236

PATIENT
  Age: 31 Year
  Sex: Female
  Weight: 99.773 kg

DRUGS (7)
  1. FAMOTIDINE [Suspect]
     Active Substance: FAMOTIDINE
     Indication: Dyspepsia
     Dosage: 20 MG, SINGLE
     Route: 048
     Dates: start: 20230727, end: 20230727
  2. FAMOTIDINE [Suspect]
     Active Substance: FAMOTIDINE
     Dosage: 20 MG, BID
     Route: 048
     Dates: start: 20230728, end: 20230729
  3. FAMOTIDINE [Suspect]
     Active Substance: FAMOTIDINE
     Dosage: 20 MG, SINGLE
     Route: 048
     Dates: start: 20230730, end: 20230730
  4. XANAX [Concomitant]
     Active Substance: ALPRAZOLAM
     Indication: Anxiety
     Dosage: UNK
     Route: 065
     Dates: start: 2022
  5. RIFAMPIN [Concomitant]
     Active Substance: RIFAMPIN
     Indication: Cat scratch disease
     Dosage: UNK
     Route: 065
     Dates: start: 2022
  6. AZITHROMYCIN [Concomitant]
     Active Substance: AZITHROMYCIN
     Indication: Cat scratch disease
     Dosage: UNK
     Route: 065
     Dates: start: 202305
  7. KETOTIFEN [Concomitant]
     Active Substance: KETOTIFEN
     Indication: Mast cell activation syndrome
     Dosage: UNK
     Route: 065
     Dates: start: 2022

REACTIONS (6)
  - Dizziness [Recovered/Resolved]
  - Nausea [Recovered/Resolved]
  - Heart rate increased [Recovering/Resolving]
  - Anxiety [Recovered/Resolved]
  - Chest discomfort [Unknown]
  - Heart rate irregular [Recovering/Resolving]

NARRATIVE: CASE EVENT DATE: 20230728
